FAERS Safety Report 5213647-X (Version None)
Quarter: 2007Q1

REPORT INFORMATION
  Report Type: 
  Country: None (occurrence: None)
  Receive Date: 20070119
  Receipt Date: 20070112
  Transmission Date: 20070707
  Serious: Yes (Hospitalization)
  Sender: FDA-Public Use
  Company Number: US-PFIZER INC-2007003996

PATIENT
  Age: 78 Year
  Sex: Male

DRUGS (13)
  1. ZOLOFT [Suspect]
     Indication: DEPRESSION
     Route: 048
  2. NAMENDA [Suspect]
     Indication: DEMENTIA ALZHEIMER'S TYPE
     Route: 048
     Dates: start: 20050101
  3. WARFARIN SODIUM [Concomitant]
     Dosage: FREQ:DAILY
  4. RISPERDAL [Concomitant]
  5. RAZADYNE [Concomitant]
     Dosage: DAILY DOSE:16MG-FREQ:DAILY
  6. ZANTAC [Concomitant]
     Dosage: DAILY DOSE:150MG-FREQ:DAILY
  7. SINGULAIR [Concomitant]
     Dosage: DAILY DOSE:10MG-FREQ:DAILY
  8. LORAZEPAM [Concomitant]
     Dosage: DAILY DOSE:.5MG-FREQ:DAILY
  9. CLARITIN [Concomitant]
     Dosage: DAILY DOSE:10MG-FREQ:DAILY
  10. OPHTHALMOLOGICALS [Concomitant]
     Route: 031
  11. NEXIUM [Concomitant]
     Dosage: DAILY DOSE:40MG-FREQ:DAILY
  12. COLACE [Concomitant]
     Dosage: DAILY DOSE:200MG-FREQ:DAILY
  13. TYLENOL [Concomitant]

REACTIONS (3)
  - CONTUSION [None]
  - FATIGUE [None]
  - PLATELET COUNT DECREASED [None]
